FAERS Safety Report 19855190 (Version 2)
Quarter: 2021Q3

REPORT INFORMATION
  Report Type: Spontaneous
  Country: NL (occurrence: NL)
  Receive Date: 20210920
  Receipt Date: 20210921
  Transmission Date: 20211014
  Serious: Yes (Life-Threatening, Other)
  Sender: FDA-Public Use
  Company Number: NL-MYLANLABS-2021M1063287

PATIENT
  Age: 78 Year
  Sex: Female
  Weight: 63 kg

DRUGS (11)
  1. PFIZER?BIONTECH COVID?19 VACCINE [Suspect]
     Active Substance: TOZINAMERAN
     Indication: COVID-19 IMMUNISATION
     Dosage: UNK
     Dates: start: 20210411, end: 20210411
  2. COLECALCIFEROL [Concomitant]
     Active Substance: CHOLECALCIFEROL
     Dosage: UNK(1 X PER DAY 50 MG)
  3. GLUCOSAMINE [Concomitant]
     Active Substance: GLUCOSAMINE
     Dosage: UNK(1500 MG PER DAY)
  4. MULTIVITAMIN                       /00097801/ [Concomitant]
     Active Substance: VITAMINS
     Dosage: UNK(1 A 3DRAGEES P.DAG)
  5. CLOPIDOGREL [Suspect]
     Active Substance: CLOPIDOGREL BISULFATE
     Indication: ANTICOAGULANT THERAPY
     Dosage: (1X PER DAY 1 PIECE)
     Dates: start: 20210331
  6. HYDROCHLOORTHIAZIDE A [Concomitant]
     Dosage: UNK(1X PER DAY 22, 5 MG)
  7. OMEGA 18/12 FISH OIL [Concomitant]
     Dosage: UNK(2 CAPS PER DAY )
  8. METOPROLOL. [Concomitant]
     Active Substance: METOPROLOL
     Dosage: 1/2 X 25
  9. LITHIUM CARBONATE. [Concomitant]
     Active Substance: LITHIUM CARBONATE
     Dosage: UNK(300MG P.DAG)
  10. NADROPARIN [Suspect]
     Active Substance: NADROPARIN
     Indication: HIP SURGERY
     Dosage: (1X PER DAY 1 SYRINGE)
     Dates: start: 20210331
  11. SIMVASTATINE [Concomitant]
     Active Substance: SIMVASTATIN
     Dosage: UNK(FILMOMHULDE TABLET, 20 MG (MILLIGRAM))

REACTIONS (1)
  - Transient ischaemic attack [Recovering/Resolving]

NARRATIVE: CASE EVENT DATE: 20210414
